FAERS Safety Report 16226669 (Version 1)
Quarter: 2019Q2

REPORT INFORMATION
  Report Type: Spontaneous
  Country: CA (occurrence: CA)
  Receive Date: 20190423
  Receipt Date: 20190423
  Transmission Date: 20190711
  Serious: Yes (Life-Threatening)
  Sender: FDA-Public Use
  Company Number: CA-TEVA-2019-CA-1039484

PATIENT
  Age: 50 Year
  Sex: Female

DRUGS (22)
  1. CIPROFLOXACIN. [Suspect]
     Active Substance: CIPROFLOXACIN
     Indication: KLEBSIELLA INFECTION
     Route: 048
  2. ACETAMINOPHEN. [Concomitant]
     Active Substance: ACETAMINOPHEN
  3. CLOXACILLIN [Concomitant]
     Active Substance: CLOXACILLIN
  4. IPRATROPIUM [Concomitant]
     Active Substance: IPRATROPIUM
  5. VENLAFAXINE XR [Concomitant]
     Active Substance: VENLAFAXINE HYDROCHLORIDE
  6. FORMOTEROL FOR INHALATION [Concomitant]
  7. LEVOTHYROXINE. [Concomitant]
     Active Substance: LEVOTHYROXINE
  8. TRAZODONE [Concomitant]
     Active Substance: TRAZODONE HYDROCHLORIDE
  9. POLYETHYLENE GLYCOL [Concomitant]
     Active Substance: POLYETHYLENE GLYCOLS
  10. POTASSIUM CHLORIDE. [Concomitant]
     Active Substance: POTASSIUM CHLORIDE
  11. SALBUTAMOL [Concomitant]
     Active Substance: ALBUTEROL
  12. AMLODIPINE [Concomitant]
     Active Substance: AMLODIPINE BESYLATE
  13. FUROSEMIDE. [Concomitant]
     Active Substance: FUROSEMIDE
  14. PANTOPRAZOLE [Concomitant]
     Active Substance: PANTOPRAZOLE
  15. CLONIDINE. [Concomitant]
     Active Substance: CLONIDINE
  16. RIFAMPIN. [Concomitant]
     Active Substance: RIFAMPIN
  17. METHADONE [Concomitant]
     Active Substance: METHADONE HYDROCHLORIDE
  18. NICOTINE. [Concomitant]
     Active Substance: NICOTINE
  19. ASPIRIN. [Concomitant]
     Active Substance: ASPIRIN
  20. METOLAZONE. [Concomitant]
     Active Substance: METOLAZONE
  21. MOMETASONE FUROATE. [Concomitant]
     Active Substance: MOMETASONE FUROATE
  22. TRAMADOL HYDROCHLORIDE. [Concomitant]
     Active Substance: TRAMADOL HYDROCHLORIDE

REACTIONS (2)
  - Torsade de pointes [Recovered/Resolved]
  - Atrioventricular block second degree [Recovered/Resolved]
